FAERS Safety Report 18087577 (Version 2)
Quarter: 2020Q3

REPORT INFORMATION
  Report Type: Spontaneous
  Country: IT (occurrence: IT)
  Receive Date: 20200729
  Receipt Date: 20200928
  Transmission Date: 20201103
  Serious: Yes (Disabling, Other)
  Sender: FDA-Public Use
  Company Number: IT-009507513-2007ITA010745

PATIENT
  Age: 32 Year
  Sex: Male
  Weight: 69 kg

DRUGS (4)
  1. PROPECIA [Suspect]
     Active Substance: FINASTERIDE
     Dosage: 0.25 MILLIGRAM / DAY
     Route: 048
     Dates: start: 2014, end: 201412
  2. PROPECIA [Suspect]
     Active Substance: FINASTERIDE
     Dosage: 1 MILLIGRAM / DAY
     Route: 048
     Dates: start: 200908, end: 2012
  3. PROPECIA [Suspect]
     Active Substance: FINASTERIDE
     Dosage: 0.5 MILLIGRAM / DAY
     Route: 048
     Dates: start: 2012, end: 2013
  4. PROPECIA [Suspect]
     Active Substance: FINASTERIDE
     Indication: ANDROGENETIC ALOPECIA
     Dosage: 1 MILLIGRAM / DAY
     Route: 048
     Dates: start: 200310, end: 20090506

REACTIONS (24)
  - Keratitis [Recovering/Resolving]
  - Aphthous ulcer [Recovering/Resolving]
  - Dyspnoea exertional [Recovered/Resolved]
  - Post 5-alpha-reductase inhibitor syndrome [Recovering/Resolving]
  - Alcohol intolerance [Recovering/Resolving]
  - Gliosis [Unknown]
  - Peripheral arterial occlusive disease [Recovering/Resolving]
  - Bacterial test positive [Recovering/Resolving]
  - Pyrexia [Unknown]
  - Hepatic steatosis [Recovering/Resolving]
  - Feeding intolerance [Recovering/Resolving]
  - Gluten sensitivity [Recovering/Resolving]
  - Blood fibrinogen increased [Recovering/Resolving]
  - Dizziness [Recovering/Resolving]
  - Hypotension [Recovering/Resolving]
  - Autoimmune colitis [Unknown]
  - Chest pain [Unknown]
  - Aortic dilatation [Unknown]
  - Steatorrhoea [Recovering/Resolving]
  - Secretion discharge [Recovering/Resolving]
  - Episcleritis [Unknown]
  - Corneal abrasion [Recovering/Resolving]
  - Impaired healing [Recovering/Resolving]
  - Blood homocysteine increased [Recovering/Resolving]

NARRATIVE: CASE EVENT DATE: 20070228
